FAERS Safety Report 4932277-8 (Version None)
Quarter: 2006Q1

REPORT INFORMATION
  Report Type: 
  Country: None (occurrence: None)
  Receive Date: 20060228
  Receipt Date: 20060130
  Transmission Date: 20060701
  Serious: Yes (Hospitalization)
  Sender: FDA-Public Use
  Company Number: 6020280

PATIENT
  Age: 67 Year
  Sex: Male

DRUGS (1)
  1. CONCOR 10 MG(10 MG)(BISOPROLOL FUMARATE) [Suspect]
     Indication: ANGINA PECTORIS
     Dosage: 5 MG (5 MG, IN 1 D)
     Dates: start: 19950101

REACTIONS (17)
  - APHONIA [None]
  - APTYALISM [None]
  - BRADYCARDIA [None]
  - DYSPHASIA [None]
  - DYSPHONIA [None]
  - DYSURIA [None]
  - EYE BURNS [None]
  - HICCUPS [None]
  - HYPERHIDROSIS [None]
  - LACRIMATION DECREASED [None]
  - NERVOUS SYSTEM DISORDER [None]
  - NEURITIS [None]
  - PAIN [None]
  - PRURITUS [None]
  - TREMOR [None]
  - UROGENITAL DISORDER [None]
  - VAGUS NERVE DISORDER [None]
